FAERS Safety Report 7473493-3 (Version None)
Quarter: 2011Q1

REPORT INFORMATION
  Report Type: 
  Country: None (occurrence: None)
  Receive Date: 20110302
  Receipt Date: 20100909
  Transmission Date: 20110831
  Serious: Yes (Other)
  Sender: FDA-Public Use
  Company Number: 163-21880-10070409

PATIENT
  Age: 87 Year
  Sex: Male

DRUGS (4)
  1. HYDROCODONE (HYDROCODONE) [Concomitant]
  2. CARAFATE [Concomitant]
  3. MOTRIN [Concomitant]
  4. REVLIMID [Suspect]
     Indication: MULTIPLE MYELOMA
     Dosage: 5 MG, M-W-F EACH WEEK, PO
     Route: 048
     Dates: start: 20070101

REACTIONS (3)
  - ECZEMA [None]
  - CONDITION AGGRAVATED [None]
  - NEUTROPENIA [None]
